FAERS Safety Report 5248728-8 (Version None)
Quarter: 2007Q1

REPORT INFORMATION
  Report Type: 
  Country: None (occurrence: None)
  Receive Date: 20070223
  Receipt Date: 20070220
  Transmission Date: 20070707
  Serious: Yes (Hospitalization)
  Sender: FDA-Public Use
  Company Number: 2007-154292-NL

PATIENT
  Age: 38 Year
  Sex: Female

DRUGS (2)
  1. HUMEGON [Suspect]
     Indication: IN VITRO FERTILISATION
     Dosage: 200 IU
  2. LEUPROLIDE ACETATE [Concomitant]

REACTIONS (1)
  - MYOCARDIAL INFARCTION [None]
